FAERS Safety Report 4657137-1 (Version None)
Quarter: 2005Q2

REPORT INFORMATION
  Report Type: 
  Country: None (occurrence: None)
  Receive Date: 20050506
  Receipt Date: 20050427
  Transmission Date: 20051028
  Serious: Yes (Hospitalization)
  Sender: FDA-Public Use
  Company Number: 163-20785-05040551

PATIENT
  Age: 53 Year
  Sex: Female

DRUGS (27)
  1. THALOMID [Suspect]
     Indication: MULTIPLE MYELOMA
     Dosage: 200 MG, QD, ORAL
     Route: 048
     Dates: start: 20041124, end: 20041219
  2. DEXAMETHASONE [Suspect]
     Indication: MULTIPLE MYELOMA
     Dosage: 40 MG, X 4 DAYS EVERY 3 WEEKS, ORAL
     Route: 048
     Dates: start: 20050119, end: 20050122
  3. DEXAMETHASONE [Suspect]
     Indication: MULTIPLE MYELOMA
     Dosage: 40 MG, X 4 DAYS EVERY 3 WEEKS, ORAL
     Route: 048
     Dates: start: 20041206
  4. MELPHALAN (MELPHALAN) [Suspect]
     Indication: MULTIPLE MYELOMA
     Dosage: 200MG/UL, INTRAVENOUS
     Route: 042
     Dates: start: 20050120
  5. ARANESP [Concomitant]
  6. FOLIC ACID [Concomitant]
  7. NIFEREX (POLYSACCHARIDE-IRON COMPLEX) [Concomitant]
  8. CALCIUM (CALCIUM) [Concomitant]
  9. FENTANYL PATCH (FENTANYL) [Concomitant]
  10. LEVAQUIN [Concomitant]
  11. VORICONAZOLE (VORICONAZOLE) [Concomitant]
  12. ZANTAC [Concomitant]
  13. DIFLUCAN [Concomitant]
  14. AREDIA [Concomitant]
  15. VALCYTE [Concomitant]
  16. ACYCLOVIR [Concomitant]
  17. REGLAN [Concomitant]
  18. PHYTONADIONE [Concomitant]
  19. EMED (EMEDASTINE) [Concomitant]
  20. PRIMAXIN (PRIMAXIN) [Concomitant]
  21. TOBRAMYCIN [Concomitant]
  22. IMODIUM [Concomitant]
  23. ATIVAN [Concomitant]
  24. FLAGYL [Concomitant]
  25. SANDOSTATIN [Concomitant]
  26. COMPAZINE [Concomitant]
  27. PROTONIX [Concomitant]

REACTIONS (15)
  - ASCITES [None]
  - ATELECTASIS [None]
  - BLOOD LACTATE DEHYDROGENASE INCREASED [None]
  - BLOOD MAGNESIUM DECREASED [None]
  - CHOLECYSTITIS CHRONIC [None]
  - COLITIS [None]
  - COUGH [None]
  - GAMMA-GLUTAMYLTRANSFERASE INCREASED [None]
  - HIATUS HERNIA [None]
  - MUCOSAL INFLAMMATION [None]
  - PANCYTOPENIA [None]
  - PLEURAL EFFUSION [None]
  - RHINORRHOEA [None]
  - SEPSIS [None]
  - UTERINE LEIOMYOMA [None]
